FAERS Safety Report 11212682 (Version 1)
Quarter: 2015Q2

REPORT INFORMATION
  Report Type: Spontaneous
  Country: US (occurrence: None)
  Receive Date: 20150622
  Receipt Date: 20150622
  Transmission Date: 20150821
  Serious: Yes (Disabling)
  Sender: FDA-Public Use
  Company Number: None

PATIENT
  Age: 55 Year
  Sex: Female
  Weight: 63.5 kg

DRUGS (3)
  1. ALEVE [Concomitant]
     Active Substance: NAPROXEN SODIUM
  2. TYLENOL [Concomitant]
     Active Substance: ACETAMINOPHEN
  3. HYDROXYCHLOROQUINE 200MG TABS [Suspect]
     Active Substance: HYDROXYCHLOROQUINE
     Indication: RHEUMATOID FACTOR INCREASED
     Dosage: 1 PILL
     Route: 048

REACTIONS (6)
  - Blindness [None]
  - Eye disorder [None]
  - Scan abnormal [None]
  - Tinnitus [None]
  - Toxicity to various agents [None]
  - Deafness [None]

NARRATIVE: CASE EVENT DATE: 20140804
